FAERS Safety Report 8330032-2 (Version None)
Quarter: 2012Q2

REPORT INFORMATION
  Report Type: 
  Country: None (occurrence: None)
  Receive Date: 20120502
  Receipt Date: 20120424
  Transmission Date: 20120825
  Serious: Yes (Other)
  Sender: FDA-Public Use
  Company Number: US-US-EMD SERONO, INC.-7128447

PATIENT
  Sex: Female

DRUGS (2)
  1. ZOLOFT [Concomitant]
     Indication: PRODUCT USED FOR UNKNOWN INDICATION
  2. REBIF [Suspect]
     Indication: MULTIPLE SCLEROSIS
     Dates: start: 20100426, end: 20110101

REACTIONS (6)
  - SUICIDAL BEHAVIOUR [None]
  - MAJOR DEPRESSION [None]
  - HYPOAESTHESIA [None]
  - ANGER [None]
  - MIGRAINE [None]
  - MEMORY IMPAIRMENT [None]
